FAERS Safety Report 5648173-7 (Version None)
Quarter: 2008Q1

REPORT INFORMATION
  Report Type: 
  Country: None (occurrence: None)
  Receive Date: 20080131
  Receipt Date: 20071127
  Transmission Date: 20080703
  Serious: No
  Sender: FDA-Public Use
  Company Number: US200708006005

PATIENT
  Age: 79 Year
  Sex: Female

DRUGS (15)
  1. BYETTA [Suspect]
     Indication: TYPE 2 DIABETES MELLITUS
     Dosage: 5 UG, 2/D, SUBCUTANEOUS ; 10 UG, 2/D, SUBCUTANEOUS ; SUBCUTANEOUS
     Route: 058
     Dates: start: 20060331, end: 20060401
  2. BYETTA [Suspect]
     Indication: TYPE 2 DIABETES MELLITUS
     Dosage: 5 UG, 2/D, SUBCUTANEOUS ; 10 UG, 2/D, SUBCUTANEOUS ; SUBCUTANEOUS
     Route: 058
     Dates: start: 20060401
  3. AMARYL [Concomitant]
  4. SYNTHROID [Concomitant]
  5. OMEPRAZOLE [Concomitant]
  6. PREDNISONE TAB [Concomitant]
  7. PLAQUENIL [Concomitant]
  8. BONIVA [Concomitant]
  9. TRAMADOL HCL [Concomitant]
  10. INSPRA [Concomitant]
  11. HYDROCHLOROTHIAZIDE [Concomitant]
  12. AVAPRO [Concomitant]
  13. AMLODIPINE [Concomitant]
  14. ATENOLOL [Concomitant]
  15. LIPITOR [Concomitant]

REACTIONS (3)
  - MALAISE [None]
  - NAUSEA [None]
  - VOMITING [None]
